FAERS Safety Report 12981945 (Version 1)
Quarter: 2016Q4

REPORT INFORMATION
  Report Type: Not Available
  Country: GB (occurrence: GB)
  Receive Date: 20161129
  Receipt Date: 20161129
  Transmission Date: 20170207
  Serious: Yes (Hospitalization)
  Sender: FDA-Public Use
  Company Number: GB-PURDUE PHARMA-GBR-2016-0041875

PATIENT
  Age: 54 Year
  Sex: Female

DRUGS (8)
  1. BETAMETHASONE. [Concomitant]
     Active Substance: BETAMETHASONE
     Dosage: UNK, PRN
     Route: 061
  2. DOUBLEBASE [Concomitant]
     Active Substance: ISOPROPYL MYRISTATE\PARAFFIN
     Dosage: UNK, PRN
  3. FOSTAIR [Concomitant]
     Active Substance: BECLOMETHASONE\FORMOTEROL
     Dosage: 2 DF, BID
     Route: 055
  4. COD LIVER OIL [Concomitant]
     Active Substance: COD LIVER OIL
     Dosage: 1 DF, DAILY
  5. UNIPHYLLIN CONTINUS [Suspect]
     Active Substance: THEOPHYLLINE ANHYDROUS
     Indication: ASTHMA
     Dosage: 300 MG, BID
     Route: 048
  6. PREDNISOLONE. [Concomitant]
     Active Substance: PREDNISOLONE
     Dosage: 30 MG, DAILY
  7. SALBUTAMOL [Concomitant]
     Active Substance: ALBUTEROL
     Dosage: UNK, PRN
     Route: 055
  8. DOXYCYCLINE. [Concomitant]
     Active Substance: DOXYCYCLINE
     Dosage: 100 MG, DAILY

REACTIONS (4)
  - Circulatory collapse [Recovered/Resolved]
  - Ventricular tachycardia [Unknown]
  - Palpitations [Unknown]
  - Cardiac arrest [Recovered/Resolved with Sequelae]
